FAERS Safety Report 12949799 (Version 1)
Quarter: 2016Q4

REPORT INFORMATION
  Report Type: Spontaneous
  Country: US (occurrence: US)
  Receive Date: 20161116
  Receipt Date: 20161116
  Transmission Date: 20170207
  Serious: Yes (Death)
  Sender: FDA-Public Use
  Company Number: None

PATIENT
  Age: 56 Year
  Sex: Female

DRUGS (22)
  1. CONGESTAC [Concomitant]
     Active Substance: GUAIFENESIN\PSEUDOEPHEDRINE HYDROCHLORIDE
  2. CARAFATE [Concomitant]
     Active Substance: SUCRALFATE
  3. NAPROXEN. [Concomitant]
     Active Substance: NAPROXEN
  4. SYMMETREL [Concomitant]
     Active Substance: AMANTADINE HYDROCHLORIDE
  5. ALDACTONE [Concomitant]
     Active Substance: SPIRONOLACTONE
  6. COPAXONE [Suspect]
     Active Substance: GLATIRAMER ACETATE
     Indication: MULTIPLE SCLEROSIS
     Dosage: ?          OTHER FREQUENCY:SC 3 TIMES A WEEK;?
     Route: 058
     Dates: start: 20160318, end: 20161026
  7. WELCHOL [Concomitant]
     Active Substance: COLESEVELAM HYDROCHLORIDE
  8. DIGOXIN. [Concomitant]
     Active Substance: DIGOXIN
  9. ASACOL HD [Concomitant]
     Active Substance: MESALAMINE
  10. NEURONTIN [Concomitant]
     Active Substance: GABAPENTIN
  11. NORCO [Concomitant]
     Active Substance: ACETAMINOPHEN\HYDROCODONE BITARTRATE
  12. COREG [Concomitant]
     Active Substance: CARVEDILOL
  13. ZOLOFT [Concomitant]
     Active Substance: SERTRALINE HYDROCHLORIDE
  14. LEVITRA [Concomitant]
     Active Substance: VARDENAFIL HYDROCHLORIDE TRIHYDRATE
  15. LIPITOR [Concomitant]
     Active Substance: ATORVASTATIN CALCIUM
  16. BENTYL [Concomitant]
     Active Substance: DICYCLOMINE HYDROCHLORIDE
  17. TRAVATAN Z [Concomitant]
     Active Substance: TRAVOPROST
  18. LISINOPRIL. [Concomitant]
     Active Substance: LISINOPRIL
  19. TIZANIDINE HCL [Concomitant]
     Active Substance: TIZANIDINE HYDROCHLORIDE
  20. AMITIZA [Concomitant]
     Active Substance: LUBIPROSTONE
  21. LASIX [Concomitant]
     Active Substance: FUROSEMIDE
  22. RANITIDINE ACID REDUCER [Concomitant]
     Active Substance: RANITIDINE HYDROCHLORIDE

REACTIONS (1)
  - Death [None]
